FAERS Safety Report 8510689 (Version 11)
Quarter: 2013Q1

REPORT INFORMATION
  Report Type: Report from Study
  Country: US (occurrence: US)
  Receive Date: 20120413
  Receipt Date: 20130207
  Transmission Date: 20140127
  Serious: Yes (Death, Life-Threatening, Hospitalization, Disabling)
  Sender: FDA-Public Use
  Company Number: US-ROCHE-1054992

PATIENT
  Age: 51 Year
  Sex: Female
  Weight: 57.3 kg

DRUGS (38)
  1. TRASTUZUMAB [Suspect]
     Indication: BREAST CANCER METASTATIC
     Dosage: LAST DOSE PRIOR TO SAE 09/MAR/2012, LAST DOSE TAKEN: 344 MG
     Route: 042
     Dates: start: 20120106
  2. DOCETAXEL [Suspect]
     Indication: BREAST CANCER METASTATIC
     Dosage: LAST DOSE PRIOR TO SAE 09/MAR/2012, LAST DOSE TAKEN: 167 MG
     Route: 042
     Dates: start: 20120106
  3. PACLITAXEL [Suspect]
     Indication: BREAST CANCER METASTATIC
     Dosage: LAST DOSE PRIOR TO SAE: 09/MAR/2012
     Route: 042
  4. BENADRYL [Concomitant]
     Route: 065
     Dates: start: 20111219, end: 20120327
  5. FERROUS SULFATE [Concomitant]
     Indication: ANAEMIA
     Route: 065
     Dates: start: 20111219, end: 20120330
  6. NAPROXEN [Concomitant]
     Indication: BONE PAIN
     Route: 065
     Dates: start: 20111219, end: 20120327
  7. CELEXA [Concomitant]
     Indication: DEPRESSION
     Route: 065
     Dates: start: 20120106, end: 20120330
  8. ATIVAN [Concomitant]
     Indication: ANXIETY
     Route: 065
     Dates: start: 20120106
  9. ALOXI [Concomitant]
     Indication: NAUSEA
     Route: 065
     Dates: start: 20120106, end: 20120309
  10. DEXAMETHASONE [Concomitant]
     Indication: PROPHYLAXIS OF NAUSEA AND VOMITING
     Route: 065
     Dates: start: 20120106, end: 20120309
  11. DIPHENHYDRAMINE HCL [Concomitant]
     Route: 065
     Dates: start: 20120106, end: 20120309
  12. ZOMETA [Concomitant]
     Route: 065
     Dates: start: 20120127, end: 20120309
  13. NEULASTA [Concomitant]
     Route: 065
     Dates: start: 20120107, end: 20120312
  14. LORTAB [Concomitant]
     Indication: BONE PAIN
     Route: 065
     Dates: start: 20120120, end: 20120327
  15. ROBAXIN [Concomitant]
     Route: 065
     Dates: start: 20120127, end: 20120327
  16. PHENERGAN [Concomitant]
     Route: 065
     Dates: start: 20111219, end: 20120327
  17. REMERON [Concomitant]
     Indication: DEPRESSION
     Route: 065
     Dates: start: 20120309, end: 20120327
  18. ZOFRAN [Concomitant]
     Route: 065
     Dates: start: 20111219, end: 20120327
  19. POTASSIUM CHLORIDE [Concomitant]
     Indication: HYPOKALAEMIA
     Route: 065
     Dates: start: 20120309, end: 20120327
  20. POTASSIUM CHLORIDE [Concomitant]
     Route: 065
     Dates: start: 20120328
  21. ACETAMINOPHEN [Concomitant]
     Route: 065
     Dates: start: 20120221, end: 20120404
  22. CIPROFLOXACIN [Concomitant]
     Indication: URINARY TRACT INFECTION
     Route: 065
     Dates: start: 20120222, end: 20120228
  23. HYDROCODONE/ACETAMINOPHEN [Concomitant]
     Indication: BREAST PAIN
     Route: 065
     Dates: start: 20120221, end: 20120327
  24. DEXTROSE [Concomitant]
     Route: 065
     Dates: start: 20120329, end: 20120331
  25. FOSPHENYTOIN SODIUM [Concomitant]
     Indication: CONVULSION
     Route: 065
     Dates: start: 20120328, end: 20120330
  26. MAGNESIUM SULFATE [Concomitant]
     Indication: HYPOMAGNESAEMIA
     Route: 065
     Dates: start: 20120330, end: 20120402
  27. MINERAL OIL [Concomitant]
     Indication: DRY SKIN
     Route: 065
     Dates: start: 20120327, end: 20120404
  28. PROTONIX [Concomitant]
     Route: 065
     Dates: start: 20120327, end: 20120401
  29. LORAZEPAM [Concomitant]
     Indication: ANXIETY
     Route: 065
     Dates: start: 20120328, end: 20120404
  30. INSULIN ASPART [Concomitant]
     Indication: HYPERGLYCAEMIA
     Route: 065
     Dates: start: 20120330, end: 20120404
  31. LASIX [Concomitant]
     Route: 065
     Dates: start: 20120402, end: 20120402
  32. COCAINE [Concomitant]
     Route: 065
     Dates: start: 20120221, end: 20120327
  33. UDDERLY SMOOTH CREAM [Concomitant]
     Route: 065
     Dates: start: 20120309
  34. AMLODIPINE BESYLATE [Concomitant]
     Indication: HYPERTENSION
     Route: 065
     Dates: start: 20111219
  35. MORPHINE SULFATE [Concomitant]
     Indication: PAIN
     Route: 065
     Dates: start: 20120328, end: 20120404
  36. HYDROCODONE BITARTRATE [Concomitant]
     Indication: PAIN
     Route: 065
     Dates: start: 20120106, end: 20120327
  37. SODIUM CHLORIDE [Concomitant]
     Indication: DEHYDRATION
     Route: 042
     Dates: start: 20120327
  38. SODIUM CHLORIDE [Concomitant]
     Indication: RENAL FAILURE ACUTE

REACTIONS (7)
  - Haemorrhage intracranial [Fatal]
  - Acute respiratory failure [Not Recovered/Not Resolved]
  - Sepsis [Not Recovered/Not Resolved]
  - Pneumonia streptococcal [Not Recovered/Not Resolved]
  - Convulsion [Recovered/Resolved]
  - Failure to thrive [Not Recovered/Not Resolved]
  - Hypotension [Not Recovered/Not Resolved]
